FAERS Safety Report 4430198-0 (Version None)
Quarter: 2004Q3

REPORT INFORMATION
  Report Type: 
  Country: None (occurrence: None)
  Receive Date: 20040819
  Receipt Date: 20040819
  Transmission Date: 20050211
  Serious: Yes (Disabling)
  Sender: FDA-Public Use
  Company Number: None

PATIENT
  Age: 82 Year
  Sex: Male
  Weight: 55 kg

DRUGS (1)
  1. VASOPRESSIN [Suspect]
     Dosage: 2MG/HR

REACTIONS (1)
  - SKIN DISCOLOURATION [None]
